FAERS Safety Report 9782052 (Version 1)
Quarter: 2013Q4

REPORT INFORMATION
  Report Type: Spontaneous
  Country: CA (occurrence: CA)
  Receive Date: 20131226
  Receipt Date: 20131226
  Transmission Date: 20140711
  Serious: Yes (Other)
  Sender: FDA-Public Use
  Company Number: CA-ROCHE-1325091

PATIENT
  Age: 36 Year
  Sex: Male

DRUGS (10)
  1. XOLAIR [Suspect]
     Indication: ASTHMA
     Route: 058
     Dates: start: 20121031
  2. XOLAIR [Suspect]
     Route: 058
     Dates: start: 20130403
  3. XOLAIR [Suspect]
     Route: 058
     Dates: start: 20130501
  4. XOLAIR [Suspect]
     Route: 058
     Dates: start: 20130529
  5. XOLAIR [Suspect]
     Route: 058
     Dates: start: 20130724
  6. XOLAIR [Suspect]
     Route: 058
     Dates: start: 20130821
  7. XOLAIR [Suspect]
     Route: 058
     Dates: start: 20131120
  8. XOLAIR [Suspect]
     Route: 058
     Dates: start: 20131218
  9. ADVAIR [Concomitant]
  10. SALBUTAMOL [Concomitant]

REACTIONS (3)
  - Blood pressure increased [Not Recovered/Not Resolved]
  - Musculoskeletal discomfort [Unknown]
  - Musculoskeletal discomfort [Unknown]
